FAERS Safety Report 25509870 (Version 1)
Quarter: 2025Q3

REPORT INFORMATION
  Report Type: Spontaneous
  Country: US (occurrence: US)
  Receive Date: 20250703
  Receipt Date: 20250703
  Transmission Date: 20251021
  Serious: No
  Sender: RADIUS PHARM
  Company Number: US-RADIUS HEALTH INC.-2024US001267

PATIENT
  Age: 65 Year
  Sex: Female

DRUGS (1)
  1. TYMLOS [Suspect]
     Active Substance: ABALOPARATIDE
     Indication: Senile osteoporosis
     Route: 058
     Dates: start: 202402

REACTIONS (9)
  - Dizziness [Recovering/Resolving]
  - Vertigo [Unknown]
  - Injection site scar [Unknown]
  - Weight increased [Unknown]
  - Fatigue [Not Recovered/Not Resolved]
  - Orthostatic hypotension [Unknown]
  - Abdominal distension [Unknown]
  - Blister [Unknown]
  - Injection site bruising [Unknown]

NARRATIVE: CASE EVENT DATE: 20240227
